FAERS Safety Report 15052843 (Version 1)
Quarter: 2018Q2

REPORT INFORMATION
  Report Type: Spontaneous
  Country: AU (occurrence: AU)
  Receive Date: 20180622
  Receipt Date: 20180622
  Transmission Date: 20180711
  Serious: Yes (Other)
  Sender: FDA-Public Use
  Company Number: AU-PFIZER INC-2018248702

PATIENT
  Age: 57 Year
  Sex: Male

DRUGS (10)
  1. PARACETAMOL [Suspect]
     Active Substance: ACETAMINOPHEN
     Dosage: UNK
  2. RISPERIDONE. [Suspect]
     Active Substance: RISPERIDONE
     Dosage: UNK
  3. TEMAZEPAM. [Suspect]
     Active Substance: TEMAZEPAM
     Dosage: UNK
  4. OLANZAPINE. [Suspect]
     Active Substance: OLANZAPINE
     Dosage: UNK
  5. CHOLECALCIFEROL [Suspect]
     Active Substance: CHOLECALCIFEROL
     Dosage: UNK
  6. CLOZARIL [Suspect]
     Active Substance: CLOZAPINE
     Dosage: UNK
  7. PANTOPRAZOLE [Suspect]
     Active Substance: PANTOPRAZOLE
     Dosage: UNK
  8. BUPRENORPHINE HYDROCHLORIDE. [Suspect]
     Active Substance: BUPRENORPHINE HYDROCHLORIDE
     Dosage: UNK
  9. OXAZEPAM. [Suspect]
     Active Substance: OXAZEPAM
     Dosage: UNK
  10. VALPROATE SODIUM. [Suspect]
     Active Substance: VALPROATE SODIUM
     Dosage: UNK

REACTIONS (7)
  - Leukopenia [Unknown]
  - Blood disorder [Unknown]
  - Bone marrow failure [Unknown]
  - Neutropenia [Unknown]
  - Cognitive disorder [Unknown]
  - Condition aggravated [Unknown]
  - Dysarthria [Unknown]
